FAERS Safety Report 9917761 (Version 1)
Quarter: 2014Q1

REPORT INFORMATION
  Report Type: Spontaneous
  Country: US (occurrence: US)
  Receive Date: 20140221
  Receipt Date: 20140221
  Transmission Date: 20141002
  Serious: Yes (Other)
  Sender: FDA-Public Use
  Company Number: US-BIOMARINAP-US-2014-102538

PATIENT
  Age: 12 Year
  Sex: Female

DRUGS (3)
  1. NAGLAZYME [Suspect]
     Indication: MUCOPOLYSACCHARIDOSIS VI
     Dosage: 20 MG, QW
     Route: 041
     Dates: start: 20050810
  2. NAGLAZYME [Suspect]
     Dosage: 25 MG, QW
     Route: 041
     Dates: start: 20131119
  3. SINGULAIR [Concomitant]
     Indication: PRODUCT USED FOR UNKNOWN INDICATION

REACTIONS (5)
  - Pneumonia [Not Recovered/Not Resolved]
  - Pyrexia [Unknown]
  - Medical device complication [Unknown]
  - Infusion site swelling [Unknown]
  - Infusion site pain [Unknown]
